FAERS Safety Report 8174726-0 (Version None)
Quarter: 2012Q1

REPORT INFORMATION
  Report Type: 
  Country: None (occurrence: None)
  Receive Date: 20120229
  Receipt Date: 20120222
  Transmission Date: 20120608
  Serious: Yes (Other)
  Sender: FDA-Public Use
  Company Number: GB-GLAXOSMITHKLINE-B0779710A

PATIENT
  Age: 80 Year
  Sex: Male

DRUGS (8)
  1. WARFARIN SODIUM [Concomitant]
  2. LAMOTRIGINE [Suspect]
     Indication: EPILEPSY
     Dosage: 25MG PER DAY
  3. LATANOPROST [Concomitant]
     Indication: GLAUCOMA
     Route: 047
  4. RAMIPRIL [Suspect]
     Indication: HYPERTENSION
     Dosage: 1.25MG PER DAY
     Route: 048
     Dates: start: 20120124
  5. FINASTERIDE [Concomitant]
     Dosage: 5MG PER DAY
     Route: 048
  6. LEVOTHYROXINE SODIUM [Concomitant]
     Dosage: 25MCG PER DAY
     Dates: start: 20120125
  7. TAMSULOSIN HCL [Concomitant]
  8. UNKNOWN [Concomitant]

REACTIONS (3)
  - HAEMOGLOBIN DECREASED [None]
  - MYELODYSPLASTIC SYNDROME [None]
  - WHITE BLOOD CELL COUNT DECREASED [None]
